FAERS Safety Report 5322164-8 (Version None)
Quarter: 2007Q2

REPORT INFORMATION
  Report Type: 
  Country: None (occurrence: None)
  Receive Date: 20070220
  Receipt Date: 20061228
  Transmission Date: 20071010
  Serious: No
  Sender: FDA-Public Use
  Company Number: TPA2007A00063

PATIENT
  Age: 76 Year
  Sex: Male
  Weight: 81.6475 kg

DRUGS (4)
  1. ROZEREM [Suspect]
     Dosage: URETHRAL
     Route: 066
  2. AMIODARONE HCL [Concomitant]
  3. MELATONIN [Concomitant]
  4. AMBIEN [Concomitant]

REACTIONS (1)
  - INITIAL INSOMNIA [None]
